FAERS Safety Report 9339420 (Version 2)
Quarter: 2013Q2

REPORT INFORMATION
  Report Type: Spontaneous
  Country: FR (occurrence: FR)
  Receive Date: 20130610
  Receipt Date: 20130620
  Transmission Date: 20140414
  Serious: Yes (Death, Hospitalization)
  Sender: FDA-Public Use
  Company Number: FR-SANOFI-AVENTIS-2013SA055219

PATIENT
  Age: 83 Year
  Sex: Female

DRUGS (13)
  1. LASILIX [Suspect]
     Indication: PRODUCT USED FOR UNKNOWN INDICATION
     Route: 048
     Dates: end: 20130328
  2. SERMION [Suspect]
     Indication: PRODUCT USED FOR UNKNOWN INDICATION
     Route: 048
     Dates: end: 20130328
  3. COOLMETEC [Suspect]
     Indication: PRODUCT USED FOR UNKNOWN INDICATION
     Route: 048
     Dates: end: 20130328
  4. SYNEDIL [Suspect]
     Indication: PRODUCT USED FOR UNKNOWN INDICATION
     Route: 048
     Dates: end: 20130328
  5. TRIVASTAL [Suspect]
     Indication: PRODUCT USED FOR UNKNOWN INDICATION
     Route: 048
     Dates: end: 20130328
  6. KARDEGIC [Concomitant]
  7. TAHOR [Concomitant]
  8. CORGARD [Concomitant]
  9. AMLOR [Concomitant]
  10. CALCIDIA [Concomitant]
  11. LEVOTHYROX [Concomitant]
  12. LUDIOMIL [Concomitant]
  13. XANAX [Concomitant]

REACTIONS (2)
  - Fall [Recovering/Resolving]
  - Extrapyramidal disorder [Recovering/Resolving]
